FAERS Safety Report 10533796 (Version 1)
Quarter: 2014Q4

REPORT INFORMATION
  Report Type: Spontaneous
  Country: US (occurrence: None)
  Receive Date: 20141021
  Receipt Date: 20141021
  Transmission Date: 20150529
  Serious: Yes (Other)
  Sender: FDA-Public Use
  Company Number: None

PATIENT
  Age: 56 Year
  Sex: Female

DRUGS (2)
  1. TORADOL [Suspect]
     Active Substance: KETOROLAC TROMETHAMINE
     Indication: CHEST PAIN
     Dosage: UNKNOWN ONCE INTO A VEIN
     Dates: start: 20140714, end: 20140714
  2. TORADOL [Suspect]
     Active Substance: KETOROLAC TROMETHAMINE
     Indication: ABDOMINAL PAIN UPPER
     Dosage: UNKNOWN ONCE INTO A VEIN
     Dates: start: 20140714, end: 20140714

REACTIONS (6)
  - Feeling drunk [None]
  - Hypoaesthesia [None]
  - Presyncope [None]
  - Hypoaesthesia oral [None]
  - Confusional state [None]
  - Dysarthria [None]

NARRATIVE: CASE EVENT DATE: 20140714
